FAERS Safety Report 9759504 (Version 1)
Quarter: 2013Q4

REPORT INFORMATION
  Report Type: Spontaneous
  Country: DK (occurrence: FR)
  Receive Date: 20131216
  Receipt Date: 20131216
  Transmission Date: 20140711
  Serious: Yes (Life-Threatening)
  Sender: FDA-Public Use
  Company Number: FR-FRI-1000052254

PATIENT
  Age: 67 Year
  Sex: Male

DRUGS (6)
  1. ESCITALOPRAM [Suspect]
     Indication: ANXIETY
     Dosage: 1 DF
     Route: 048
     Dates: start: 20130715, end: 20130728
  2. TEMESTA [Suspect]
     Route: 048
     Dates: start: 20130715
  3. COAPROVEL [Concomitant]
  4. LERCAN [Concomitant]
  5. ZYLORIC [Concomitant]
  6. PRAXILENE [Concomitant]

REACTIONS (2)
  - Suicide attempt [Not Recovered/Not Resolved]
  - Mood altered [Not Recovered/Not Resolved]
